FAERS Safety Report 14310208 (Version 1)
Quarter: 2017Q4

REPORT INFORMATION
  Report Type: Spontaneous
  Country: US (occurrence: US)
  Receive Date: 20171220
  Receipt Date: 20171220
  Transmission Date: 20180321
  Serious: No
  Sender: FDA-Public Use
  Company Number: US-LUNDBECK-DKLU2030589

PATIENT
  Age: 81 Year
  Sex: Male

DRUGS (4)
  1. NORTHERA [Suspect]
     Active Substance: DROXIDOPA
     Indication: ORTHOSTATIC HYPOTENSION
     Dosage: EVERY AFTERNOON
     Route: 048
     Dates: start: 20160730
  2. NORTHERA [Suspect]
     Active Substance: DROXIDOPA
     Indication: PARKINSON^S DISEASE
     Dosage: IN AM
     Route: 048
     Dates: start: 20160730
  3. NORTHERA [Suspect]
     Active Substance: DROXIDOPA
     Dosage: EVERY EVENING
     Route: 048
     Dates: start: 20160730
  4. NORTHERA [Suspect]
     Active Substance: DROXIDOPA
     Dosage: EVERY AFTERNOON
     Route: 048
     Dates: start: 20160730

REACTIONS (1)
  - Urinary tract infection [Unknown]

NARRATIVE: CASE EVENT DATE: 20170508
